FAERS Safety Report 6619605-2 (Version None)
Quarter: 2010Q1

REPORT INFORMATION
  Report Type: 
  Country: None (occurrence: None)
  Receive Date: 20100309
  Receipt Date: 20100301
  Transmission Date: 20100710
  Serious: Yes (Hospitalization)
  Sender: FDA-Public Use
  Company Number: IT-ABBOTT-10P-083-0621822-00

PATIENT
  Sex: Female

DRUGS (4)
  1. KLACID [Suspect]
     Indication: OROPHARYNGEAL PAIN
     Dosage: 2 UNITS FOR 1 DAY
     Route: 048
     Dates: start: 20081215, end: 20081218
  2. BACTRIM [Suspect]
     Indication: GENITAL INFECTION
     Dosage: 2 UNITS FOR 1 DAY
     Route: 048
     Dates: start: 20081209, end: 20081215
  3. SPORANOX [Suspect]
     Indication: GENITAL CANDIDIASIS
     Dosage: 2 UNITS FOR 1 DAY
     Route: 048
     Dates: start: 20081209, end: 20081215
  4. VELAMOX [Concomitant]
     Indication: GENITAL INFECTION BACTERIAL
     Dates: start: 20081203, end: 20081208

REACTIONS (3)
  - DYSPNOEA [None]
  - PRURITUS [None]
  - RASH PAPULAR [None]
